FAERS Safety Report 4717246-5 (Version None)
Quarter: 2005Q3

REPORT INFORMATION
  Report Type: 
  Country: None (occurrence: None)
  Receive Date: 20050719
  Receipt Date: 20050215
  Transmission Date: 20060218
  Serious: Yes (Death, Hospitalization)
  Sender: FDA-Public Use
  Company Number: GB-BRISTOL-MYERS SQUIBB COMPANY-12866273

PATIENT
  Age: 28 Year
  Sex: Female
  Weight: 37 kg

DRUGS (12)
  1. AMIKIN [Suspect]
     Indication: BACTERAEMIA
     Route: 042
     Dates: start: 20050207, end: 20050210
  2. AMIODARONE [Concomitant]
     Indication: PAIN
     Dosage: ORAL/IV LONG TERM USE, DOSE INCREASED APPROXIMATELY 27-JAN-2005.
  3. CEFUROXIME [Concomitant]
     Indication: ANTI-INFECTIVE THERAPY
     Route: 042
     Dates: start: 20050125, end: 20050130
  4. ACETAMINOPHEN [Concomitant]
     Indication: PAIN
     Dosage: PER RECTAL/NASOGASTRIC
     Route: 048
     Dates: start: 20050125
  5. AMIODARONE [Concomitant]
     Indication: ARRHYTHMIA
     Dosage: ORAL/IV LONG TERM, DOSE INCREASED ON 27-JAN-2005
     Route: 048
  6. LEVOTHYROXINE [Concomitant]
     Indication: HYPOTHYROIDISM
     Dosage: ORAL/NASOGASTRIC, LONG TERM USE.
     Route: 048
  7. ASPIRIN [Concomitant]
     Indication: ANTIPLATELET THERAPY
     Dosage: ORAL/NASOGASTRIC. LONG TERM
     Route: 048
     Dates: end: 20050119
  8. TEICOPLANIN [Concomitant]
     Indication: SEPSIS
     Route: 042
     Dates: start: 20050125, end: 20050211
  9. TEICOPLANIN [Concomitant]
     Indication: ANTI-INFECTIVE THERAPY
     Route: 042
     Dates: start: 20050125, end: 20050211
  10. HYDROCORTISONE [Concomitant]
     Indication: SEPSIS
     Dosage: PATIENT WAS BEING WEANED OFF
     Route: 042
     Dates: start: 20050126
  11. HYDROCORTISONE [Concomitant]
     Indication: BLOOD CORTICOTROPHIN ABNORMAL
     Dosage: PATIENT WAS BEING WEANED OFF
     Route: 042
     Dates: start: 20050126
  12. RANITIDINE [Concomitant]
     Indication: PROPHYLAXIS
     Dosage: 50 MG 3 TIMES DAILY REDUCED TO 25 MG 3 TIMES DAILY ON 31-JAN-2005, TWICE DAILY ON 03-FEB-2005.
     Route: 042

REACTIONS (4)
  - BLOOD CREATINE PHOSPHOKINASE INCREASED [None]
  - DEATH [None]
  - LYMPHOCYTE COUNT INCREASED [None]
  - MYOSITIS [None]
